FAERS Safety Report 7617572-6 (Version None)
Quarter: 2011Q3

REPORT INFORMATION
  Report Type: 
  Country: None (occurrence: None)
  Receive Date: 20110718
  Receipt Date: 20110712
  Transmission Date: 20111222
  Serious: Yes (Hospitalization)
  Sender: FDA-Public Use
  Company Number: FR-ELI_LILLY_AND_COMPANY-FR201106003034

PATIENT
  Sex: Male
  Weight: 66 kg

DRUGS (3)
  1. CISPLATIN [Suspect]
     Indication: NON-SMALL CELL LUNG CANCER
     Dosage: 75 MG/M2, EVERY 3 WEEKS
     Route: 042
     Dates: start: 20110302, end: 20110520
  2. GEMCITABINE HYDROCHLORIDE [Suspect]
     Indication: NON-SMALL CELL LUNG CANCER
     Dosage: 1250 MG/M2, UNK
     Route: 042
     Dates: start: 20110302, end: 20110526
  3. CETUXIMAB [Suspect]
     Indication: NON-SMALL CELL LUNG CANCER
     Dosage: 250 MG/M2, WEEKLY (1/W)
     Route: 042
     Dates: start: 20110302, end: 20110526

REACTIONS (1)
  - ABDOMINAL PAIN [None]
